FAERS Safety Report 6375669-5 (Version None)
Quarter: 2009Q3

REPORT INFORMATION
  Report Type: 
  Country: None (occurrence: None)
  Receive Date: 20090918
  Receipt Date: 20090918
  Transmission Date: 20100115
  Serious: Yes (Other)
  Sender: FDA-Public Use
  Company Number: None

PATIENT
  Age: 56 Year
  Sex: Female
  Weight: 56.6996 kg

DRUGS (1)
  1. METOCLOPRAMIDE HCL [Suspect]
     Indication: IRRITABLE BOWEL SYNDROME
     Dosage: 1 X/DAY ONCE A DAY PO
     Route: 048
     Dates: start: 20070701, end: 20090601

REACTIONS (1)
  - DYSKINESIA [None]
